FAERS Safety Report 9146112 (Version 1)
Quarter: 2013Q1

REPORT INFORMATION
  Report Type: Spontaneous
  Country: US (occurrence: None)
  Receive Date: 20130204
  Receipt Date: 20130204
  Transmission Date: 20140127
  Serious: Yes (Death, Hospitalization)
  Sender: FDA-Public Use
  Company Number: FK201300240

PATIENT
  Age: 61 Year
  Sex: Female

DRUGS (1)
  1. HEPARIN [Suspect]
     Indication: PRODUCT USED FOR UNKNOWN INDICATION
     Dosage: TWO INJECTIONS PRIOR TO SURGERY, SUBCUTANEOUS

REACTIONS (16)
  - Splenic rupture [None]
  - Heparin-induced thrombocytopenia [None]
  - Splenic vein thrombosis [None]
  - Mesenteric vein thrombosis [None]
  - Pulmonary embolism [None]
  - Lipase increased [None]
  - Portal vein thrombosis [None]
  - Hepatic infarction [None]
  - Pancreatitis [None]
  - Hypotension [None]
  - Haemoglobin decreased [None]
  - Peritoneal haemorrhage [None]
  - Pleural effusion [None]
  - Hypovolaemia [None]
  - Renal infarct [None]
  - Sudden death [None]
